FAERS Safety Report 4870854-3 (Version None)
Quarter: 2005Q4

REPORT INFORMATION
  Report Type: 
  Country: None (occurrence: None)
  Receive Date: 20051229
  Receipt Date: 20051222
  Transmission Date: 20060501
  Serious: Yes (Other)
  Sender: FDA-Public Use
  Company Number: 2005-09-1049

PATIENT
  Age: 71 Year
  Sex: Female

DRUGS (4)
  1. PEG-INTRON [Suspect]
     Indication: HEPATITIS C
     Dosage: 60-30 MCG QW SUBCUTANEOUS
     Route: 058
     Dates: start: 20050318, end: 20050729
  2. PEG-INTRON [Suspect]
     Indication: HEPATITIS C
     Dosage: 60-30 MCG QW SUBCUTANEOUS
     Route: 058
     Dates: start: 20050805, end: 20050812
  3. REBETOL [Suspect]
     Indication: HEPATITIS C
     Dosage: 600; 400 MG ORAL
     Route: 048
     Dates: start: 20050318, end: 20050427
  4. REBETOL [Suspect]
     Indication: HEPATITIS C
     Dosage: 600; 400 MG ORAL
     Route: 048
     Dates: start: 20050428, end: 20050812

REACTIONS (1)
  - CEREBRAL HAEMORRHAGE [None]
